FAERS Safety Report 21874872 (Version 1)
Quarter: 2023Q1

REPORT INFORMATION
  Report Type: Spontaneous
  Country: US (occurrence: None)
  Receive Date: 20230117
  Receipt Date: 20230117
  Transmission Date: 20230417
  Serious: No
  Sender: FDA-Public Use
  Company Number: 2023A013385

PATIENT
  Sex: Male

DRUGS (1)
  1. TEZSPIRE [Suspect]
     Active Substance: TEZEPELUMAB-EKKO
     Indication: Asthma
     Dosage: INJECT 210MG (1 PREFILLED SYRINGE) SUBCUTANEOUSLY EVERY 28 DAYS
     Route: 058

REACTIONS (2)
  - Gait disturbance [Recovered/Resolved]
  - Drug ineffective [Unknown]
